FAERS Safety Report 16203290 (Version 2)
Quarter: 2019Q2

REPORT INFORMATION
  Report Type: Spontaneous
  Country: US (occurrence: US)
  Receive Date: 20190416
  Receipt Date: 20190423
  Transmission Date: 20190711
  Serious: Yes (Other)
  Sender: FDA-Public Use
  Company Number: US-PFIZER INC-2019157929

PATIENT
  Age: 60 Year
  Sex: Male
  Weight: 98.88 kg

DRUGS (21)
  1. OXYCODONE [Concomitant]
     Active Substance: OXYCODONE
     Indication: PAIN
     Dosage: 1 DF, 4X/DAY
     Route: 048
  2. FENOFIBRATE. [Concomitant]
     Active Substance: FENOFIBRATE
     Indication: BLOOD DISORDER
     Dosage: 145 MG, 1X/DAY (145 MILLIGRAMS, ONE TABLET BY MOUTH PER DAY)
     Route: 048
  3. POTASSIUM [Concomitant]
     Active Substance: POTASSIUM
     Indication: DIURETIC THERAPY
     Dosage: 30 MEQ, 1X/DAY (10 MILLIEQUIVALENTS, 3 CAPSULES BY MOUTH PER DAY)
     Route: 048
  4. METOLAZONE. [Concomitant]
     Active Substance: METOLAZONE
     Indication: BLOOD POTASSIUM ABNORMAL
     Dosage: 5 MG, 2X/WEEK (5 MILLIGRAM TABLETS BY MOUTH TWICE A WEEK )
     Route: 048
  5. BAYER ASPIRIN [Concomitant]
     Active Substance: ASPIRIN
     Indication: ATRIOVENTRICULAR BLOCK
     Dosage: 81 MG, 1X/DAY (81 MILLIGRAM TABLET BY MOUTH ONCE PER DAY )
     Route: 048
  6. ISOSORBIDE. [Concomitant]
     Active Substance: ISOSORBIDE
     Indication: LEG AMPUTATION
  7. LYRICA [Suspect]
     Active Substance: PREGABALIN
     Indication: PAIN IN EXTREMITY
     Dosage: 300 MG, DAILY
  8. METOPROLOL. [Concomitant]
     Active Substance: METOPROLOL
     Indication: CARDIAC DISORDER
     Dosage: 50 MG, 1X/DAY (50 MILLIGRAMS, ONE TABLET BY MOUTH AT BEDTIME)
     Route: 048
  9. OXYCONTIN [Concomitant]
     Active Substance: OXYCODONE HYDROCHLORIDE
     Indication: PAIN
     Dosage: 15 MG, 2X/DAY (15 MILLIGRAM TABLETS BY MOUTH TWICE PER DAY )
     Route: 048
  10. ROPINIROLE. [Concomitant]
     Active Substance: ROPINIROLE
     Indication: RESTLESS LEGS SYNDROME
     Dosage: 0.5 MG, 1X/DAY (0.5 MILLIGRAM TABLETS BY MOUTH, ONE TABLET AT BEDTIME)
     Route: 048
  11. HYDROXYZINE [Concomitant]
     Active Substance: HYDROXYZINE HYDROCHLORIDE
     Indication: SCRATCH
     Dosage: 50 MG, 4X/DAY (50 MILLIGRAM TABLETS BY MOUTH 4 TIMES PER DAY)
     Route: 048
  12. OMEPRAZOLE. [Concomitant]
     Active Substance: OMEPRAZOLE
     Indication: ABDOMINAL DISCOMFORT
     Dosage: 40 MG, 1X/DAY (40 MILLIGRAMS, ONE TABLET BY MOUTH BEFORE A MEAL )
     Route: 048
  13. CLOPIDOGREL [Concomitant]
     Active Substance: CLOPIDOGREL BISULFATE
     Indication: ANTICOAGULANT THERAPY
     Dosage: 75 MG, 1X/DAY (75 MILLIGRAMS, ONE TABLET BY MOUTH ONCE PER DAY)
     Route: 048
  14. LOSARTAN. [Concomitant]
     Active Substance: LOSARTAN
     Indication: BLOOD CHOLESTEROL ABNORMAL
     Dosage: 25 MG, 1X/DAY (25 MILLIGRAM TABLETS BY MOUTH ONCE PER DAY)
     Route: 048
  15. OXYBUTYNIN. [Concomitant]
     Active Substance: OXYBUTYNIN CHLORIDE
     Indication: SCRATCH
     Dosage: 5 MG, 2X/DAY [TWICE PER DAY]
     Route: 048
  16. ISOSORBIDE. [Concomitant]
     Active Substance: ISOSORBIDE
     Indication: BLOOD DISORDER
     Dosage: 60 MG, 1X/DAY
     Route: 048
  17. CITALOPRAM [Concomitant]
     Active Substance: CITALOPRAM HYDROBROMIDE
     Indication: ARTHRALGIA
     Dosage: 10 MG, 1X/DAY (10 MILLIGRAM TABLETS BY MOUTH ONCE PER DAY)
     Route: 048
  18. TORSEMIDE. [Concomitant]
     Active Substance: TORSEMIDE
     Indication: DIURETIC THERAPY
     Dosage: 40 MG, 2X/DAY (TWO 20 MILLIGRAM TABLETS BY MOUTH TWICE PER DAY)
     Route: 048
  19. METHOCARBAMOL. [Concomitant]
     Active Substance: METHOCARBAMOL
     Indication: TREMOR
     Dosage: 700 MG, 4X/DAY (700 MILLIGRAM TABLETS BY MOUTH 4 TIMES PER DAY )
     Route: 048
  20. LYRICA [Suspect]
     Active Substance: PREGABALIN
     Dosage: 75 MG, 2X/DAY
     Route: 048
  21. ATORVASTATIN [Concomitant]
     Active Substance: ATORVASTATIN
     Indication: BLOOD CHOLESTEROL ABNORMAL
     Dosage: 1 DF, 1X/DAY (1 TABLET BY MOUTH ONCE PER DAY; DOSE AMOUNT NOT PROVIDED)
     Route: 048

REACTIONS (6)
  - Localised infection [Unknown]
  - Phantom limb syndrome [Unknown]
  - Musculoskeletal disorder [Unknown]
  - Hepatic pain [Not Recovered/Not Resolved]
  - Skin lesion [Unknown]
  - Arterial rupture [Unknown]

NARRATIVE: CASE EVENT DATE: 20180624
